FAERS Safety Report 9328207 (Version 1)
Quarter: 2013Q2

REPORT INFORMATION
  Report Type: Spontaneous
  Country: US (occurrence: US)
  Receive Date: 20130604
  Receipt Date: 20130604
  Transmission Date: 20140414
  Serious: No
  Sender: FDA-Public Use
  Company Number: US-PFIZER INC-2013165323

PATIENT
  Sex: Male
  Weight: 4 kg

DRUGS (3)
  1. GENOTROPIN MQ [Suspect]
     Indication: GROWTH HORMONE DEFICIENCY
     Dosage: 0.2 MG, 1X/DAY
     Dates: start: 20130517
  2. GENOTROPIN MQ [Suspect]
     Dosage: 0.2 MG EVERY 48 HOURS AND HE IS ALTERNATING THAT NOW WITH 0.4 MG EVERY 48 HOURS
     Dates: start: 20130526
  3. MULTIVITAMINS [Concomitant]

REACTIONS (1)
  - Drug ineffective [Unknown]
